FAERS Safety Report 7634685-3 (Version None)
Quarter: 2011Q3

REPORT INFORMATION
  Report Type: 
  Country: None (occurrence: None)
  Receive Date: 20110725
  Receipt Date: 20090608
  Transmission Date: 20111222
  Serious: Yes (Death, Other)
  Sender: FDA-Public Use
  Company Number: US-BAYER-200922410NA

PATIENT
  Age: 64 Year
  Sex: Female

DRUGS (25)
  1. ALDACTONE [Concomitant]
     Dosage: 25 MG, QD
     Route: 048
  2. METFORMIN HCL [Concomitant]
     Dosage: 500 MG, QD
     Route: 048
  3. GLYBURIDE [Concomitant]
     Dosage: 10 MG, BID
     Route: 048
  4. TRASYLOL [Suspect]
     Indication: CARDIAC OPERATION
     Dosage: 10,000 U
     Route: 042
     Dates: start: 20050311
  5. LISINOPRIL [Concomitant]
     Route: 048
  6. AMITRIPTYLINE HCL [Concomitant]
  7. COREG [Concomitant]
     Dosage: 25 MG, QD
     Route: 048
  8. AVANDIA [Concomitant]
  9. KLOR-CON [Concomitant]
     Dosage: 40 MEQ, QD
     Route: 048
     Dates: start: 20041201
  10. GLUCOTROL [Concomitant]
  11. LOPRESSOR [Concomitant]
     Dosage: UNK
     Route: 042
     Dates: start: 20041201
  12. LIPITOR [Concomitant]
     Dosage: 40 MG, HS
     Route: 048
  13. LASIX [Concomitant]
     Dosage: 40 MG, QD
     Route: 048
  14. ACETYLSALICYLIC ACID SRT [Concomitant]
     Dosage: 325 MG, QD
  15. VANCOMYCIN [Concomitant]
     Dosage: UNK
     Dates: start: 20040311
  16. LOTREL [Concomitant]
     Dosage: 520 UNK, UNK
  17. GLIPIZIDE [Concomitant]
     Dosage: 500 MG, BID
     Route: 048
  18. DYAZIDE [Concomitant]
  19. TRASYLOL [Suspect]
     Indication: AORTIC VALVE REPLACEMENT
  20. DIGOXIN [Concomitant]
     Dosage: 0.125 MG, QD
     Route: 048
  21. GLUCOPHAGE [Concomitant]
  22. PLAVIX [Concomitant]
     Dosage: 75 MG, QD
     Dates: start: 20041201
  23. AZITHROMYCIN [Concomitant]
     Dosage: 250 MG, UNK
     Route: 048
     Dates: start: 20060203
  24. ZOCOR [Concomitant]
  25. NEXIUM [Concomitant]
     Dosage: 40 MG, QD

REACTIONS (11)
  - FEAR [None]
  - DEATH [None]
  - ANXIETY [None]
  - EMOTIONAL DISTRESS [None]
  - RENAL FAILURE [None]
  - RENAL INJURY [None]
  - INJURY [None]
  - RENAL IMPAIRMENT [None]
  - STRESS [None]
  - ANHEDONIA [None]
  - PAIN [None]
